FAERS Safety Report 9088745 (Version 1)
Quarter: 2013Q1

REPORT INFORMATION
  Report Type: Report from Study
  Country: US (occurrence: US)
  Receive Date: 20130201
  Receipt Date: 20130201
  Transmission Date: 20140127
  Serious: No
  Sender: FDA-Public Use
  Company Number: US-ABBOTT-12P-163-1024064-00

PATIENT
  Sex: Female
  Weight: 91.25 kg

DRUGS (12)
  1. HUMIRA [Suspect]
     Indication: RHEUMATOID ARTHRITIS
     Dates: start: 200709, end: 20121001
  2. ALLEGRA [Concomitant]
     Indication: HYPERSENSITIVITY
  3. CALCIUM [Concomitant]
     Indication: MINERAL SUPPLEMENTATION
  4. EXFORGE [Concomitant]
     Indication: HYPERTENSION
  5. FLONASE [Concomitant]
     Indication: HYPERSENSITIVITY
  6. FOLIC ACID [Concomitant]
     Indication: VITAMIN SUPPLEMENTATION
  7. FOSAMAX [Concomitant]
     Indication: OSTEOPOROSIS
  8. METHOTREXATE [Concomitant]
     Indication: RHEUMATOID ARTHRITIS
  9. MULTIVITAMIN [Concomitant]
     Indication: VITAMIN SUPPLEMENTATION
  10. PRILOSEC [Concomitant]
     Indication: GASTROOESOPHAGEAL REFLUX DISEASE
  11. VITAMIN D [Concomitant]
     Indication: VITAMIN SUPPLEMENTATION
  12. ZYRTEC [Concomitant]
     Indication: HYPERSENSITIVITY

REACTIONS (1)
  - Rash [Recovered/Resolved]
